FAERS Safety Report 6206887-4 (Version None)
Quarter: 2009Q2

REPORT INFORMATION
  Report Type: 
  Country: None (occurrence: None)
  Receive Date: 20090528
  Receipt Date: 20090522
  Transmission Date: 20091009
  Serious: Yes (Hospitalization)
  Sender: FDA-Public Use
  Company Number: IT-ASTRAZENECA-2009SE01913

PATIENT
  Age: 20937 Day
  Sex: Female

DRUGS (4)
  1. MEPRAL [Suspect]
     Route: 065
     Dates: start: 20090404, end: 20090504
  2. AMOXICILLIN TRIHYDRATE [Suspect]
     Route: 065
     Dates: start: 20090504, end: 20090504
  3. EUTIROX [Concomitant]
     Route: 065
  4. NORVASC [Concomitant]
     Route: 065

REACTIONS (4)
  - DYSPNOEA [None]
  - ELECTROCARDIOGRAM ST SEGMENT ELEVATION [None]
  - OEDEMA [None]
  - SHOCK [None]
